FAERS Safety Report 9735605 (Version 1)
Quarter: 2013Q4

REPORT INFORMATION
  Report Type: Spontaneous
  Country: US (occurrence: None)
  Receive Date: 20131204
  Receipt Date: 20131204
  Transmission Date: 20140711
  Serious: Yes (Death, Hospitalization)
  Sender: FDA-Public Use
  Company Number: US-ALKEM-000235

PATIENT
  Age: 57 Year
  Sex: Female

DRUGS (11)
  1. METFORMIN [Suspect]
  2. ASPIRIN [Concomitant]
  3. GLIMEPIRIDE [Concomitant]
  4. ATORVASTATIN [Concomitant]
  5. TRAZODONE [Concomitant]
  6. CLONAZEPAM [Concomitant]
  7. GLIPIZIDE [Concomitant]
  8. UBIDECARENONE [Concomitant]
  9. LOSARTAN [Concomitant]
  10. MIRTAZAPINE [Concomitant]
  11. PIOGLITAZONE [Concomitant]

REACTIONS (10)
  - Overdose [None]
  - Vomiting [None]
  - Diarrhoea [None]
  - Depressed level of consciousness [None]
  - Toxicity to various agents [None]
  - Stomatitis [None]
  - Blood glucose increased [None]
  - Anion gap increased [None]
  - Hypotension [None]
  - Completed suicide [None]
